FAERS Safety Report 24849428 (Version 1)
Quarter: 2025Q1

REPORT INFORMATION
  Report Type: Spontaneous
  Country: MX (occurrence: None)
  Receive Date: 20250114
  Receipt Date: 20250114
  Transmission Date: 20250408
  Serious: Yes (Life-Threatening, Other)
  Sender: FDA-CTU
  Company Number: None

PATIENT
  Age: 33 Year
  Sex: Male
  Weight: 55 kg

DRUGS (8)
  1. DUTASTERIDE [Suspect]
     Active Substance: DUTASTERIDE
     Indication: Alopecia
     Route: 048
  2. ESOMEPRAZOLE [Concomitant]
     Active Substance: ESOMEPRAZOLE
  3. CALCIUM [Concomitant]
     Active Substance: CALCIUM
  4. OMEGA 3 [Concomitant]
     Active Substance: CAPSAICIN
  5. VALERIAN [Concomitant]
     Active Substance: VALERIAN
  6. VITAMIN B COMPLEX [Concomitant]
     Active Substance: CYANOCOBALAMIN\DEXPANTHENOL\NIACINAMIDE\PYRIDOXINE HYDROCHLORIDE\RIBOFLAVIN 5^-PHOSPHATE SODIUM\THIA
  7. FOLIC ACID [Concomitant]
     Active Substance: FOLIC ACID
  8. PROBIOTICS NOS [Concomitant]
     Active Substance: PROBIOTICS NOS

REACTIONS (16)
  - Weight decreased [None]
  - Erectile dysfunction [None]
  - Visual impairment [None]
  - Eye pain [None]
  - Headache [None]
  - Tinnitus [None]
  - Gingival recession [None]
  - Rash macular [None]
  - Hypoaesthesia [None]
  - Tachycardia [None]
  - Bone pain [None]
  - Dyspnoea [None]
  - Hypohidrosis [None]
  - Excessive cerumen production [None]
  - Skin wrinkling [None]
  - Constipation [None]

NARRATIVE: CASE EVENT DATE: 20240820
